FAERS Safety Report 20727726 (Version 2)
Quarter: 2022Q2

REPORT INFORMATION
  Report Type: Report from Study
  Country: CA (occurrence: CA)
  Receive Date: 20220419
  Receipt Date: 20220616
  Transmission Date: 20220721
  Serious: Yes (Other)
  Sender: FDA-Public Use
  Company Number: CA-JNJFOC-20220211286

PATIENT
  Age: 31 Year
  Sex: Female
  Weight: 84 kg

DRUGS (1)
  1. REMICADE [Suspect]
     Active Substance: INFLIXIMAB
     Indication: Crohn^s disease
     Dates: start: 20151222

REACTIONS (5)
  - Crohn^s disease [Unknown]
  - Nasopharyngitis [Unknown]
  - Influenza [Unknown]
  - Vision blurred [Recovering/Resolving]
  - Excessive eye blinking [Recovering/Resolving]

NARRATIVE: CASE EVENT DATE: 20220101
